FAERS Safety Report 15452325 (Version 1)
Quarter: 2018Q4

REPORT INFORMATION
  Report Type: Spontaneous
  Country: US (occurrence: US)
  Receive Date: 20181001
  Receipt Date: 20181001
  Transmission Date: 20190204
  Serious: No
  Sender: FDA-Public Use
  Company Number: US-MIDATECHPHARMA-2018-US-012898

PATIENT
  Age: 48 Year
  Sex: Female

DRUGS (1)
  1. SOLTAMOX [Suspect]
     Active Substance: TAMOXIFEN CITRATE

REACTIONS (1)
  - Burning sensation [Unknown]
